FAERS Safety Report 4445895-0 (Version None)
Quarter: 2004Q3

REPORT INFORMATION
  Report Type: 
  Country: None (occurrence: None)
  Receive Date: 20040907
  Receipt Date: 20040823
  Transmission Date: 20050211
  Serious: Yes (Hospitalization)
  Sender: FDA-Public Use
  Company Number: 2004-CN-00302CN

PATIENT
  Age: 81 Year
  Sex: Female

DRUGS (3)
  1. MICARDIS [Suspect]
     Dosage: (40 MG)  PO
     Route: 048
  2. LIPITOR [Concomitant]
  3. ATENOLOL [Concomitant]

REACTIONS (4)
  - ASTHENIA [None]
  - DISORIENTATION [None]
  - DYSPNOEA [None]
  - VOMITING [None]
